FAERS Safety Report 9643180 (Version 2)
Quarter: 2013Q4

REPORT INFORMATION
  Report Type: Spontaneous
  Country: IT (occurrence: IT)
  Receive Date: 20131024
  Receipt Date: 20131219
  Transmission Date: 20140711
  Serious: Yes (Hospitalization)
  Sender: FDA-Public Use
  Company Number: IT-ABBVIE-13P-083-1160761-00

PATIENT
  Age: 14 Year
  Sex: Male

DRUGS (4)
  1. KLACID [Suspect]
     Indication: ASTHMA
     Route: 048
     Dates: start: 20131009, end: 20131010
  2. BENTELAN [Concomitant]
     Indication: ASTHMATIC CRISIS
  3. VENTOLIN [Concomitant]
     Indication: ASTHMATIC CRISIS
  4. LEVOTUSS [Concomitant]
     Indication: PRODUCT USED FOR UNKNOWN INDICATION

REACTIONS (3)
  - Condition aggravated [Recovered/Resolved]
  - Electrocardiogram QT prolonged [Recovered/Resolved]
  - Presyncope [Recovered/Resolved]
